FAERS Safety Report 13463383 (Version 1)
Quarter: 2017Q2

REPORT INFORMATION
  Report Type: Spontaneous
  Country: US (occurrence: US)
  Receive Date: 20170420
  Receipt Date: 20170420
  Transmission Date: 20170830
  Serious: Yes (Death)
  Sender: FDA-Public Use
  Company Number: US-MALLINCKRODT-T201701701

PATIENT
  Age: 58 Year
  Sex: Female

DRUGS (3)
  1. SUBSYS [Suspect]
     Active Substance: FENTANYL
     Indication: INTERVERTEBRAL DISC DEGENERATION
     Dosage: 400 ?G
     Route: 060
     Dates: start: 2014
  2. FENTANYL CITRATE. [Suspect]
     Active Substance: FENTANYL CITRATE
     Indication: ANAESTHESIA
     Dosage: UNK,
     Route: 065
     Dates: start: 20140702, end: 20140702
  3. EXALGO [Suspect]
     Active Substance: HYDROMORPHONE HYDROCHLORIDE
     Indication: INTERVERTEBRAL DISC DEGENERATION
     Dosage: UNK
     Route: 065

REACTIONS (1)
  - Toxicity to various agents [Fatal]

NARRATIVE: CASE EVENT DATE: 20140703
